FAERS Safety Report 17542747 (Version 1)
Quarter: 2020Q1

REPORT INFORMATION
  Report Type: Report from Study
  Country: BR (occurrence: BR)
  Receive Date: 20200315
  Receipt Date: 20200315
  Transmission Date: 20200409
  Serious: Yes (Disabling, Other)
  Sender: FDA-Public Use
  Company Number: NVSC2020BR069320

PATIENT
  Sex: Male

DRUGS (3)
  1. ENTRESTO [Suspect]
     Active Substance: SACUBITRIL\VALSARTAN
     Indication: PRODUCT USED FOR UNKNOWN INDICATION
     Dosage: 50 MG, UNKNOWN (24/26)
     Route: 065
  2. ENTRESTO [Suspect]
     Active Substance: SACUBITRIL\VALSARTAN
     Dosage: 200 MG (97/103)
     Route: 065
     Dates: start: 20200218
  3. ENTRESTO [Suspect]
     Active Substance: SACUBITRIL\VALSARTAN
     Dosage: 100 MG (8:30 AM) (MANY YEARS AGO)
     Route: 065

REACTIONS (10)
  - Loss of personal independence in daily activities [Unknown]
  - Cerebrovascular accident [Unknown]
  - Depressed mood [Unknown]
  - Mitral valve stenosis [Unknown]
  - Speech disorder [Unknown]
  - Rheumatic fever [Unknown]
  - Dyspnoea [Unknown]
  - Arterial injury [Unknown]
  - Cardiac disorder [Unknown]
  - Sydenham^s chorea [Unknown]
